FAERS Safety Report 12571425 (Version 1)
Quarter: 2016Q3

REPORT INFORMATION
  Report Type: Spontaneous
  Country: US (occurrence: US)
  Receive Date: 20160719
  Receipt Date: 20160719
  Transmission Date: 20161109
  Serious: No
  Sender: FDA-Public Use
  Company Number: US-BAYER-2016-137914

PATIENT
  Age: 59 Year
  Sex: Male

DRUGS (1)
  1. LOTRIMIN ULTRA [Suspect]
     Active Substance: BUTENAFINE HYDROCHLORIDE
     Dosage: 1 DF, QD
     Route: 061
     Dates: start: 201605, end: 201607

REACTIONS (1)
  - Rash [None]

NARRATIVE: CASE EVENT DATE: 201605
